FAERS Safety Report 7771839-X (Version None)
Quarter: 2011Q3

REPORT INFORMATION
  Report Type: 
  Country: None (occurrence: None)
  Receive Date: 20110922
  Receipt Date: 20110913
  Transmission Date: 20111222
  Serious: Yes (Death)
  Sender: FDA-Public Use
  Company Number: US-MILLENNIUM PHARMACEUTICALS, INC.-2011-04268

PATIENT

DRUGS (6)
  1. VELCADE [Suspect]
     Dosage: 1.3 MG/M2, CYCLIC
  2. CYCLOPHOSPHAMIDE [Suspect]
     Dosage: UNK
  3. SULFAMETHOXAZOLE AND TRIMETHOPRIM [Concomitant]
     Indication: PRODUCT USED FOR UNKNOWN INDICATION
  4. PREDNISONE [Suspect]
     Dosage: 100 MG, CYCLIC
     Route: 048
  5. ACYCLOVIR [Concomitant]
     Indication: PRODUCT USED FOR UNKNOWN INDICATION
  6. RITUXIMAB [Suspect]
     Dosage: 375 MG/M2, CYCLIC

REACTIONS (1)
  - DEATH [None]
